FAERS Safety Report 16761475 (Version 1)
Quarter: 2019Q3

REPORT INFORMATION
  Report Type: Spontaneous
  Country: GB (occurrence: GB)
  Receive Date: 20190830
  Receipt Date: 20190830
  Transmission Date: 20191005
  Serious: Yes (Hospitalization, Other)
  Sender: FDA-Public Use
  Company Number: GB-NAPPMUNDI-GBR-2019-0069673

PATIENT
  Sex: Female

DRUGS (2)
  1. SHORTEC [Suspect]
     Active Substance: OXYCODONE HYDROCHLORIDE
     Indication: PAIN
     Dosage: 30 MG, Q6H (STRENGTH 10 MG)
     Route: 065
  2. SHORTEC [Suspect]
     Active Substance: OXYCODONE HYDROCHLORIDE
     Dosage: 15-20 MG, Q4H (STRENGTH 10 MG)
     Route: 065

REACTIONS (8)
  - Respiratory arrest [Unknown]
  - Emergency care [Unknown]
  - Throat irritation [Unknown]
  - Vomiting [Unknown]
  - Drug ineffective [Unknown]
  - Drug dependence [Unknown]
  - Product dose omission [Unknown]
  - Product prescribing error [Unknown]
